FAERS Safety Report 9636476 (Version 1)
Quarter: 2013Q4

REPORT INFORMATION
  Report Type: Spontaneous
  Country: IN (occurrence: IN)
  Receive Date: 20131021
  Receipt Date: 20131021
  Transmission Date: 20140711
  Serious: Yes (Hospitalization, Other)
  Sender: FDA-Public Use
  Company Number: IN-WATSON-2013-18311

PATIENT
  Age: 6 Year
  Sex: Female

DRUGS (1)
  1. HALOPERIDOL [Suspect]
     Indication: ACCIDENTAL EXPOSURE TO PRODUCT BY CHILD
     Dosage: UNK
     Route: 048

REACTIONS (9)
  - Altered state of consciousness [Recovered/Resolved]
  - Dystonia [Recovered/Resolved]
  - Opisthotonus [Recovered/Resolved]
  - Clonus [Unknown]
  - Hyperreflexia [Unknown]
  - Pyrexia [Unknown]
  - Hyperhidrosis [Unknown]
  - Vomiting [Unknown]
  - Accidental exposure to product by child [Unknown]
